FAERS Safety Report 17130529 (Version 2)
Quarter: 2020Q2

REPORT INFORMATION
  Report Type: Report from Study
  Country: IN (occurrence: IN)
  Receive Date: 20191209
  Receipt Date: 20200424
  Transmission Date: 20200713
  Serious: Yes (Death)
  Sender: FDA-Public Use
  Company Number: IN-PFIZER INC-2019527403

PATIENT

DRUGS (15)
  1. CYCLOPHOSPHAMIDE. [Suspect]
     Active Substance: CYCLOPHOSPHAMIDE
     Indication: ANAPLASTIC LARGE-CELL LYMPHOMA
     Dosage: 800 MG/M2, CYCLIC (DAY 1) (CYCLE A)
  2. METHOTREXATE. [Suspect]
     Active Substance: METHOTREXATE
     Dosage: UNK, CYCLIC, (DAYS 8 AND 12) (CYCLE B)
     Route: 037
  3. MESNA. [Suspect]
     Active Substance: MESNA
     Indication: ANAPLASTIC LARGE-CELL LYMPHOMA
     Dosage: 400 MG/M2, CYCLIC, (AT 0, 4, AND 8 H AFTER THE START OF IFOSFAMIDE INFUSION)
     Route: 042
  4. DOXORUBICIN HCL [Suspect]
     Active Substance: DOXORUBICIN HYDROCHLORIDE
     Indication: ANAPLASTIC LARGE-CELL LYMPHOMA
     Dosage: 20 MG/M2, CYCLIC (DAYS 1 AND 2) (CYCLE A)
  5. VINBLASTINE [Suspect]
     Active Substance: VINBLASTINE
     Indication: ANAPLASTIC LARGE-CELL LYMPHOMA
     Dosage: 6 MG/M2, CYCLIC (DAYS 1,8 AND 15) (CYCLE A)
  6. VINBLASTINE [Suspect]
     Active Substance: VINBLASTINE
     Dosage: 6 MG/M2, CYCLIC (DAYS 1 AND 8) (CYCLE B)
  7. ETOPOSIDE. [Suspect]
     Active Substance: ETOPOSIDE
     Indication: ANAPLASTIC LARGE-CELL LYMPHOMA
     Dosage: 60 MG/M2, CYCLIC DAYS 1-3 (CYCLE B)
  8. CYCLOPHOSPHAMIDE. [Suspect]
     Active Substance: CYCLOPHOSPHAMIDE
     Dosage: 200 MG/M2, CYCLIC (DAYS 2-4) (CYCLE A)
  9. METHOTREXATE. [Suspect]
     Active Substance: METHOTREXATE
     Dosage: 15 MG/M2, DAYS 1-3, (CYCLE B)
  10. CYTARABINE. [Suspect]
     Active Substance: CYTARABINE
     Indication: ANAPLASTIC LARGE-CELL LYMPHOMA
     Dosage: 1000 MG/M2, CYCLIC (DAY 1) (CYCLE A)
  11. 6-MERCAPTOPURINE MONOHYDRATE [Suspect]
     Active Substance: MERCAPTOPURINE
     Indication: ANAPLASTIC LARGE-CELL LYMPHOMA
     Dosage: 50 MG/M2, DAILY (MAINTENANCE THERAPY)
     Route: 048
  12. CYTARABINE. [Suspect]
     Active Substance: CYTARABINE
     Dosage: UNK, (CYCLE A AND CYCLE B), DAILY
     Route: 037
  13. METHOTREXATE. [Suspect]
     Active Substance: METHOTREXATE
     Indication: ANAPLASTIC LARGE-CELL LYMPHOMA
     Dosage: UNK, CYCLIC, (DAYS 8 AND 11) (CYCLE A)
     Route: 037
  14. IFOSFAMIDE. [Suspect]
     Active Substance: IFOSFAMIDE
     Indication: ANAPLASTIC LARGE-CELL LYMPHOMA
     Dosage: 1200 MG/M2, CYCLIC DAYS 1-5
  15. METHOTREXATE. [Suspect]
     Active Substance: METHOTREXATE
     Indication: ANAPLASTIC LARGE-CELL LYMPHOMA
     Dosage: 20 MG/M2, WEEKLY (MAINTENANCE THERAPY)
     Route: 048

REACTIONS (1)
  - Encephalitis [Fatal]
